FAERS Safety Report 9387467 (Version 2)
Quarter: 2013Q3

REPORT INFORMATION
  Report Type: Spontaneous
  Country: US (occurrence: US)
  Receive Date: 20130708
  Receipt Date: 20130718
  Transmission Date: 20140515
  Serious: No
  Sender: FDA-Public Use
  Company Number: US-PFIZER INC-2013196639

PATIENT
  Age: 48 Year
  Sex: 0

DRUGS (4)
  1. ZITHROMAX [Suspect]
     Dosage: UNK
  2. DOXYCYCLINE HYCLATE [Suspect]
  3. ACETYLSALICYLIC ACID [Suspect]
     Dosage: UNK
  4. CODEINE [Suspect]
     Dosage: UNK

REACTIONS (1)
  - Drug hypersensitivity [Unknown]
